FAERS Safety Report 6061522-3 (Version None)
Quarter: 2009Q1

REPORT INFORMATION
  Report Type: 
  Country: None (occurrence: None)
  Receive Date: 20090202
  Receipt Date: 20090123
  Transmission Date: 20090719
  Serious: Yes (Death, Other)
  Sender: FDA-Public Use
  Company Number: SI-AVENTIS-200910338EU

PATIENT
  Sex: Male

DRUGS (2)
  1. ENOXAPARIN SODIUM [Suspect]
     Route: 058
  2. UNKNOWN DRUG [Concomitant]

REACTIONS (3)
  - DEATH [None]
  - EMBOLISM [None]
  - THROMBOCYTOPENIA [None]
